FAERS Safety Report 9369779 (Version 1)
Quarter: 2013Q2

REPORT INFORMATION
  Report Type: Report from Study
  Country: JP (occurrence: JP)
  Receive Date: 20130626
  Receipt Date: 20130626
  Transmission Date: 20140414
  Serious: Yes (Hospitalization)
  Sender: FDA-Public Use
  Company Number: JP-ASTELLAS-2013JP006804

PATIENT
  Age: 54 Year
  Sex: Female
  Weight: 59 kg

DRUGS (2)
  1. MIRABEGRON [Suspect]
     Indication: HYPERTONIC BLADDER
     Dosage: 25 MG, UID/QD
     Route: 048
     Dates: start: 20121115, end: 20121121
  2. MIRABEGRON [Suspect]
     Dosage: 50 MG, UID/QD
     Route: 048
     Dates: start: 20121122

REACTIONS (1)
  - Oedema [Unknown]
